FAERS Safety Report 20482849 (Version 6)
Quarter: 2022Q2

REPORT INFORMATION
  Report Type: Spontaneous
  Country: US (occurrence: US)
  Receive Date: 20220217
  Receipt Date: 20220421
  Transmission Date: 20220720
  Serious: Yes (Other)
  Sender: FDA-Public Use
  Company Number: US-MMM-MPICGF3R

PATIENT
  Sex: Female

DRUGS (2)
  1. ZEJULA [Suspect]
     Active Substance: NIRAPARIB
     Indication: Ovarian cancer
     Dosage: 300 MG, QD
     Route: 048
     Dates: start: 20220127, end: 20220217
  2. ZEJULA [Suspect]
     Active Substance: NIRAPARIB
     Dosage: 100 MG, QD
     Route: 048

REACTIONS (16)
  - Neuropathy peripheral [Unknown]
  - Renal cyst [Unknown]
  - Platelet count decreased [Unknown]
  - Epistaxis [Unknown]
  - Haemoptysis [Unknown]
  - Joint swelling [Unknown]
  - Trigger finger [Unknown]
  - Fatigue [Unknown]
  - Insomnia [Unknown]
  - Weight decreased [Recovering/Resolving]
  - Incision site pain [Unknown]
  - Peripheral swelling [Unknown]
  - Musculoskeletal stiffness [Unknown]
  - Muscle tightness [Unknown]
  - Pain in extremity [Unknown]
  - Weight increased [Unknown]
